FAERS Safety Report 10133358 (Version 2)
Quarter: 2014Q2

REPORT INFORMATION
  Report Type: Spontaneous
  Country: US (occurrence: US)
  Receive Date: 20140428
  Receipt Date: 20140507
  Transmission Date: 20141212
  Serious: No
  Sender: FDA-Public Use
  Company Number: US-ASTRAZENECA-2014SE17398

PATIENT
  Age: 65 Year
  Sex: Male

DRUGS (3)
  1. RHINOCORT AQUA [Suspect]
     Indication: MULTIPLE ALLERGIES
     Dosage: 32 MCG ONE SPRAY IN EACH NOSTRIL DAILY
     Route: 045
     Dates: start: 2013, end: 201403
  2. RHINOCORT AQUA [Suspect]
     Indication: MULTIPLE ALLERGIES
     Route: 045
  3. RAPAFLOW [Concomitant]
     Indication: BENIGN PROSTATIC HYPERPLASIA

REACTIONS (2)
  - Multiple allergies [Unknown]
  - Drug dose omission [Recovered/Resolved]
